FAERS Safety Report 4537100-1 (Version None)
Quarter: 2004Q4

REPORT INFORMATION
  Report Type: 
  Country: None (occurrence: None)
  Receive Date: 20041221
  Receipt Date: 20041210
  Transmission Date: 20050328
  Serious: Yes (Hospitalization, Other)
  Sender: FDA-Public Use
  Company Number: HQWYE945213DEC04

PATIENT
  Age: 52 Year
  Sex: Male
  Weight: 80.63 kg

DRUGS (12)
  1. RAPAMUNE [Suspect]
     Indication: PROPHYLAXIS AGAINST TRANSPLANT REJECTION
     Dosage: DOSE VARIES (CONCENTRATION CONTROLLED) 2 MG, 2 MG AND 1 MG ALTERNATING ON A CYCLICAL BASIS
     Dates: start: 20040409
  2. HYDRALAZINE HCL TAB [Concomitant]
  3. LASIX [Concomitant]
  4. CLONIDINE [Concomitant]
  5. METOPROLOL TARTRATE [Concomitant]
  6. PREDNISONE [Concomitant]
  7. GLIPIZIDE [Concomitant]
  8. FOLIC ACID [Concomitant]
  9. FISH OIL, HYDROGENATED (FISH OIL, HYDROGENATED) [Concomitant]
  10. LIPITOR [Concomitant]
  11. ASPIRIN [Concomitant]
  12. IMDUR [Concomitant]

REACTIONS (1)
  - RENAL FAILURE [None]
